FAERS Safety Report 13549077 (Version 1)
Quarter: 2017Q2

REPORT INFORMATION
  Report Type: Spontaneous
  Country: US (occurrence: US)
  Receive Date: 20170515
  Receipt Date: 20170515
  Transmission Date: 20170830
  Serious: No
  Sender: FDA-Public Use
  Company Number: None

PATIENT
  Sex: Male

DRUGS (1)
  1. HUMIRA [Suspect]
     Active Substance: ADALIMUMAB
     Indication: RHEUMATOID ARTHRITIS
     Route: 058
     Dates: start: 201610

REACTIONS (7)
  - Pain in extremity [None]
  - Drug dose omission [None]
  - Peripheral swelling [None]
  - Joint stiffness [None]
  - Arthralgia [None]
  - Limb injury [None]
  - Infection [None]
